FAERS Safety Report 13331900 (Version 1)
Quarter: 2017Q1

REPORT INFORMATION
  Report Type: Spontaneous
  Country: US (occurrence: US)
  Receive Date: 20170314
  Receipt Date: 20170314
  Transmission Date: 20170428
  Serious: No
  Sender: FDA-Public Use
  Company Number: US-JNJFOC-20170127618

PATIENT
  Sex: Female

DRUGS (1)
  1. TYLENOL REGULAR STRENGTH [Suspect]
     Active Substance: ACETAMINOPHEN
     Indication: RHEUMATOID VASCULITIS
     Dosage: HAS BEEN DOING IT FOR A LONG TIME
     Route: 065

REACTIONS (4)
  - Suspected counterfeit product [Unknown]
  - Physical product label issue [Unknown]
  - Product use issue [Unknown]
  - Intentional product misuse [Unknown]
